FAERS Safety Report 13293586 (Version 1)
Quarter: 2017Q1

REPORT INFORMATION
  Report Type: Spontaneous
  Country: US (occurrence: US)
  Receive Date: 20170303
  Receipt Date: 20170303
  Transmission Date: 20170428
  Serious: No
  Sender: FDA-Public Use
  Company Number: US-JNJFOC-20170200418

PATIENT
  Sex: Female

DRUGS (1)
  1. XARELTO [Suspect]
     Active Substance: RIVAROXABAN
     Indication: JUGULAR VEIN THROMBOSIS
     Route: 048

REACTIONS (6)
  - Dizziness [Unknown]
  - Pain in extremity [Unknown]
  - Vision blurred [Unknown]
  - Headache [Unknown]
  - Fatigue [Unknown]
  - Musculoskeletal pain [Unknown]
